FAERS Safety Report 24792575 (Version 1)
Quarter: 2024Q4

REPORT INFORMATION
  Report Type: Spontaneous
  Country: IN (occurrence: IN)
  Receive Date: 20241231
  Receipt Date: 20241231
  Transmission Date: 20250115
  Serious: Yes (Other)
  Sender: SANDOZ
  Company Number: IN-SANDOZ-SDZ2023IN061915

PATIENT
  Sex: Male

DRUGS (2)
  1. TACROLIMUS [Suspect]
     Active Substance: TACROLIMUS
     Indication: Renal transplant
     Dosage: 0.5 MG, BID
     Route: 048
  2. TACROLIMUS [Suspect]
     Active Substance: TACROLIMUS
     Dosage: UNK
     Route: 048

REACTIONS (6)
  - Renal transplant failure [Unknown]
  - Peripheral swelling [Unknown]
  - Red blood cells urine [Unknown]
  - Proteinuria [Unknown]
  - Blood creatinine abnormal [Unknown]
  - Malaise [Unknown]
